FAERS Safety Report 16456263 (Version 1)
Quarter: 2019Q3

REPORT INFORMATION
  Report Type: Spontaneous
  Country: US (occurrence: US)
  Receive Date: 20190619
  Receipt Date: 20190619
  Transmission Date: 20191004
  Serious: Yes (Hospitalization)
  Sender: FDA-Public Use
  Company Number: None

PATIENT
  Age: 61 Year
  Sex: Female

DRUGS (3)
  1. PROCRIT [Suspect]
     Active Substance: ERYTHROPOIETIN
     Indication: RENAL TRANSPLANT
     Dosage: ?          OTHER FREQUENCY:ONCE EVERY 2 WEEKS;?
     Route: 058
     Dates: start: 20160318
  2. LANTANOPROST [Concomitant]
     Active Substance: LATANOPROST
  3. PREDNISOLONE. [Concomitant]
     Active Substance: PREDNISOLONE

REACTIONS (1)
  - Infection [None]

NARRATIVE: CASE EVENT DATE: 20190618
